FAERS Safety Report 15133023 (Version 1)
Quarter: 2018Q3

REPORT INFORMATION
  Report Type: Spontaneous
  Country: RU (occurrence: RU)
  Receive Date: 20180712
  Receipt Date: 20180712
  Transmission Date: 20181010
  Serious: Yes (Other)
  Sender: FDA-Public Use
  Company Number: RU-CONCORDIA PHARMACEUTICALS INC.-GSH201807-002417

PATIENT
  Age: 75 Year
  Sex: Male

DRUGS (9)
  1. GLICLAZID [Concomitant]
  2. DABIGATRAN [Concomitant]
     Active Substance: DABIGATRAN
  3. FUROSEMIDE. [Concomitant]
     Active Substance: FUROSEMIDE
  4. METOPROLOL SUCCINATE. [Concomitant]
     Active Substance: METOPROLOL SUCCINATE
  5. SPIRONOLACTONE. [Concomitant]
     Active Substance: SPIRONOLACTONE
  6. ATORVASTATIN [Concomitant]
     Active Substance: ATORVASTATIN
  7. DIGOXIN. [Suspect]
     Active Substance: DIGOXIN
  8. ENALAPRIL [Concomitant]
     Active Substance: ENALAPRIL
  9. AMLODIPINE [Concomitant]
     Active Substance: AMLODIPINE BESYLATE

REACTIONS (1)
  - Ventricular extrasystoles [Unknown]
